FAERS Safety Report 6618705-0 (Version None)
Quarter: 2010Q1

REPORT INFORMATION
  Report Type: 
  Country: None (occurrence: None)
  Receive Date: 20100308
  Receipt Date: 20100226
  Transmission Date: 20100710
  Serious: Yes (Hospitalization)
  Sender: FDA-Public Use
  Company Number: JP-SANOFI-AVENTIS-2010SA011447

PATIENT
  Age: 43 Year
  Sex: Female

DRUGS (10)
  1. ELPLAT [Suspect]
     Indication: COLON CANCER
     Route: 041
  2. ELPLAT [Suspect]
     Route: 041
  3. 5-FU [Suspect]
     Indication: COLON CANCER
     Route: 040
  4. 5-FU [Suspect]
     Route: 041
  5. 5-FU [Suspect]
     Route: 040
  6. 5-FU [Suspect]
     Route: 041
  7. CALCIUM LEVOFOLINATE [Suspect]
     Indication: COLON CANCER
     Route: 041
  8. CALCIUM LEVOFOLINATE [Suspect]
     Route: 041
  9. AVASTIN [Suspect]
     Indication: COLON CANCER
     Route: 041
  10. AVASTIN [Suspect]
     Route: 041

REACTIONS (1)
  - PERITONITIS [None]
